FAERS Safety Report 23194693 (Version 1)
Quarter: 2023Q4

REPORT INFORMATION
  Report Type: Spontaneous
  Country: FR (occurrence: FR)
  Receive Date: 20231117
  Receipt Date: 20231117
  Transmission Date: 20240109
  Serious: Yes (Other)
  Sender: FDA-Public Use
  Company Number: None

PATIENT
  Age: 22 Year
  Sex: Female
  Weight: 48 kg

DRUGS (1)
  1. KENACORT [Suspect]
     Active Substance: TRIAMCINOLONE
     Indication: Skin lesion
     Route: 058
     Dates: start: 20230123, end: 20230320

REACTIONS (2)
  - Rash [Not Recovered/Not Resolved]
  - Injection site cyst [Not Recovered/Not Resolved]

NARRATIVE: CASE EVENT DATE: 20230501
